FAERS Safety Report 12780275 (Version 1)
Quarter: 2016Q3

REPORT INFORMATION
  Report Type: Spontaneous
  Country: US (occurrence: US)
  Receive Date: 20160926
  Receipt Date: 20160926
  Transmission Date: 20161109
  Serious: Yes (Other)
  Sender: FDA-Public Use
  Company Number: US-TEVA-695651USA

PATIENT
  Sex: Male

DRUGS (9)
  1. CITRUCEL [Concomitant]
     Active Substance: METHYLCELLULOSE (4000 MPA.S)
  2. COPAXONE [Suspect]
     Active Substance: GLATIRAMER ACETATE
     Indication: MULTIPLE SCLEROSIS
     Route: 058
     Dates: start: 201602
  3. ENALAPRIL [Concomitant]
     Active Substance: ENALAPRIL
  4. OXYBUTYNIN [Concomitant]
     Active Substance: OXYBUTYNIN
  5. VITAMIN B COMPLEX [Concomitant]
     Active Substance: CYANOCOBALAMIN\DEXPANTHENOL\NIACINAMIDE\PYRIDOXINE HYDROCHLORIDE\RIBOFLAVIN 5^-PHOSPHATE SODIUM\THIAMINE HYDROCHLORIDE\VITAMIN B COMPLEX
  6. COD LIVER [Concomitant]
     Active Substance: COD LIVER OIL
  7. UBIQUINOL [Concomitant]
     Active Substance: UBIQUINOL
  8. IBUPROFEN. [Concomitant]
     Active Substance: IBUPROFEN
  9. MULTI VIT [Concomitant]

REACTIONS (2)
  - Multiple sclerosis relapse [Unknown]
  - Balance disorder [Not Recovered/Not Resolved]

NARRATIVE: CASE EVENT DATE: 2016
